FAERS Safety Report 5946395-9 (Version None)
Quarter: 2008Q4

REPORT INFORMATION
  Report Type: 
  Country: None (occurrence: None)
  Receive Date: 20081106
  Receipt Date: 20081023
  Transmission Date: 20090506
  Serious: Yes (Hospitalization)
  Sender: FDA-Public Use
  Company Number: 2008BM000156

PATIENT
  Age: 4 Year
  Sex: Male
  Weight: 11 kg

DRUGS (5)
  1. NAGLAZYME [Suspect]
     Indication: MUCOPOLYSACCHARIDOSIS VI
     Dosage: 10 MG;QW;IVDRP : 15 MG;QW;IVDRP
     Route: 041
     Dates: start: 20060201, end: 20080918
  2. NAGLAZYME [Suspect]
     Indication: MUCOPOLYSACCHARIDOSIS VI
     Dosage: 10 MG;QW;IVDRP : 15 MG;QW;IVDRP
     Route: 041
     Dates: start: 20081022
  3. CETRIZIN [Concomitant]
  4. CEFALEXIN [Concomitant]
  5. OXYGEN [Concomitant]

REACTIONS (5)
  - ADENOIDECTOMY [None]
  - MYRINGOTOMY [None]
  - OXYGEN SATURATION DECREASED [None]
  - TACHYPNOEA [None]
  - TONSILLECTOMY [None]
